FAERS Safety Report 15722562 (Version 1)
Quarter: 2018Q4

REPORT INFORMATION
  Report Type: Spontaneous
  Country: CA (occurrence: CA)
  Receive Date: 20181214
  Receipt Date: 20181214
  Transmission Date: 20190205
  Serious: Yes (Other)
  Sender: FDA-Public Use
  Company Number: CA-TEVA-2018-CA-988769

PATIENT
  Age: 64 Year
  Sex: Female
  Weight: 138.02 kg

DRUGS (1)
  1. AMLODIPINE [Suspect]
     Active Substance: AMLODIPINE BESYLATE
     Indication: HYPERTENSION
     Dosage: 5 MILLIGRAM DAILY;
     Route: 048

REACTIONS (3)
  - Dyspnoea exertional [Recovered/Resolved]
  - Product substitution issue [Recovered/Resolved]
  - Oedema peripheral [Recovered/Resolved]
